FAERS Safety Report 7239130-8 (Version None)
Quarter: 2011Q1

REPORT INFORMATION
  Report Type: 
  Country: None (occurrence: None)
  Receive Date: 20110121
  Receipt Date: 20110113
  Transmission Date: 20110831
  Serious: Yes (Hospitalization, Other)
  Sender: FDA-Public Use
  Company Number: FR-CEPHALON-2010006122

PATIENT
  Sex: Female
  Weight: 50 kg

DRUGS (12)
  1. ACTIQ [Suspect]
     Indication: CANCER PAIN
     Route: 002
     Dates: start: 20101109, end: 20101123
  2. EFFEXOR XR [Concomitant]
     Dates: start: 20101013
  3. DURAGESIC-50 [Concomitant]
     Dates: start: 20101208
  4. DURAGESIC-50 [Concomitant]
     Dates: start: 20101123, end: 20101208
  5. PREVISCAN [Concomitant]
     Dates: start: 20101001
  6. SERESTA [Concomitant]
     Dates: start: 20101013
  7. DURAGESIC-50 [Concomitant]
     Indication: CANCER PAIN
     Dates: start: 20101109, end: 20101123
  8. TAMOXIFENE [Concomitant]
     Dates: start: 20101001
  9. LYRICA [Concomitant]
     Dates: start: 20101013
  10. ACTIQ [Suspect]
     Route: 002
     Dates: start: 20101208
  11. ACTIQ [Suspect]
     Route: 002
     Dates: start: 20101123, end: 20101208
  12. EMLA [Concomitant]
     Dates: start: 20101013

REACTIONS (5)
  - THIRST [None]
  - METASTASES TO BONE [None]
  - DRY MOUTH [None]
  - DRUG PRESCRIBING ERROR [None]
  - BREAST CANCER [None]
